FAERS Safety Report 5808029-3 (Version None)
Quarter: 2008Q3

REPORT INFORMATION
  Report Type: 
  Country: None (occurrence: None)
  Receive Date: 20080708
  Receipt Date: 20080627
  Transmission Date: 20090109
  Serious: Yes (Hospitalization)
  Sender: FDA-Public Use
  Company Number: A-CH2008-21078

PATIENT
  Age: 73 Year
  Sex: Male

DRUGS (1)
  1. TRACLEER [Suspect]
     Indication: PORTOPULMONARY HYPERTENSION
     Dosage: 125 MG, BID, ORAL
     Route: 048
     Dates: start: 20080201

REACTIONS (6)
  - BIOPSY BONE MARROW ABNORMAL [None]
  - LEUKOPENIA [None]
  - NEUTROPENIA [None]
  - RENAL FAILURE [None]
  - RIGHT VENTRICULAR FAILURE [None]
  - THROMBOCYTOPENIA [None]
